FAERS Safety Report 6897283-5 (Version None)
Quarter: 2010Q3

REPORT INFORMATION
  Report Type: 
  Country: None (occurrence: None)
  Receive Date: 20100802
  Receipt Date: 20070503
  Transmission Date: 20110219
  Serious: Yes (Other)
  Sender: FDA-Public Use
  Company Number: US-PFIZER INC-2007023361

PATIENT
  Sex: Male
  Weight: 69.9 kg

DRUGS (6)
  1. LYRICA [Suspect]
     Indication: NEURALGIA
     Route: 048
     Dates: start: 20070313
  2. LYRICA [Suspect]
     Indication: HERPES ZOSTER
  3. NORVASC [Concomitant]
  4. HYDROXYUREA [Concomitant]
  5. AMBIEN [Concomitant]
  6. ENULOSE [Concomitant]

REACTIONS (7)
  - ABNORMAL BEHAVIOUR [None]
  - CONFUSIONAL STATE [None]
  - FLUSHING [None]
  - HALLUCINATION [None]
  - HYPERSOMNIA [None]
  - LETHARGY [None]
  - RASH [None]
